FAERS Safety Report 5970898-4 (Version None)
Quarter: 2008Q4

REPORT INFORMATION
  Report Type: 
  Country: None (occurrence: None)
  Receive Date: 20081128
  Receipt Date: 20081117
  Transmission Date: 20090506
  Serious: Yes (Other)
  Sender: FDA-Public Use
  Company Number: PHHY2008GB26686

PATIENT
  Sex: Male

DRUGS (6)
  1. CLOZARIL [Suspect]
     Dosage: 300 MG/DAY
     Dates: start: 20080901
  2. VALPROATE SODIUM [Concomitant]
     Indication: AFFECTIVE DISORDER
     Dosage: 600 MG DAILY
     Route: 048
  3. HYOSCINE [Concomitant]
     Dosage: 300 MCG
     Route: 048
  4. ATORVASTATIN [Concomitant]
     Indication: BLOOD CHOLESTEROL INCREASED
     Dosage: 20 MG
     Route: 048
  5. LACTULOSE [Concomitant]
     Indication: CONSTIPATION
     Dosage: 20 ML
     Route: 048
  6. MULTI-VITAMINS [Concomitant]
     Dosage: 1 TABLET DAILY

REACTIONS (6)
  - BRONCHITIS [None]
  - COUGH [None]
  - HODGKIN'S DISEASE [None]
  - LOWER RESPIRATORY TRACT INFECTION [None]
  - WHEEZING [None]
  - WHITE BLOOD CELL COUNT DECREASED [None]
